FAERS Safety Report 9208086 (Version 2)
Quarter: 2013Q2

REPORT INFORMATION
  Report Type: Spontaneous
  Country: US (occurrence: US)
  Receive Date: 20130403
  Receipt Date: 20130513
  Transmission Date: 20140414
  Serious: No
  Sender: FDA-Public Use
  Company Number: US-ASTRAZENECA-2013SE18738

PATIENT
  Age: 55 Year
  Sex: Male
  Weight: 99.8 kg

DRUGS (4)
  1. SYMBICORT [Suspect]
     Indication: ASTHMA
     Dosage: 2 PUFFS BID
     Route: 055
     Dates: start: 2011
  2. SYMBICORT [Suspect]
     Indication: ASTHMA
     Dosage: 160/4.5 MCG, 3 PUFFS UNKNOWN
     Route: 055
     Dates: start: 20130318
  3. ZESTRIL [Suspect]
     Indication: BLOOD PRESSURE
     Route: 048
  4. SINGULAIR [Concomitant]

REACTIONS (2)
  - Chest discomfort [Unknown]
  - Intentional drug misuse [Unknown]
